FAERS Safety Report 4396263-1 (Version None)
Quarter: 2004Q3

REPORT INFORMATION
  Report Type: 
  Country: None (occurrence: None)
  Receive Date: 20040713
  Receipt Date: 20040706
  Transmission Date: 20050211
  Serious: Yes (Hospitalization)
  Sender: FDA-Public Use
  Company Number: PHRM2004FR02310

PATIENT
  Age: 62 Year
  Sex: Female

DRUGS (3)
  1. AREDIA [Suspect]
     Dosage: 60 MG/DAY
     Route: 042
     Dates: start: 20040317, end: 20040317
  2. LIVIAL [Concomitant]
     Route: 048
  3. OROCAL D3 [Concomitant]
     Route: 048

REACTIONS (4)
  - C-REACTIVE PROTEIN INCREASED [None]
  - MYALGIA [None]
  - PYREXIA [None]
  - RASH MORBILLIFORM [None]
